FAERS Safety Report 8581655 (Version 2)
Quarter: 2013Q2

REPORT INFORMATION
  Report Type: Spontaneous
  Country: US (occurrence: US)
  Receive Date: 20120525
  Receipt Date: 20130523
  Transmission Date: 20140414
  Serious: No
  Sender: FDA-Public Use
  Company Number: US-ASTRAZENECA-2011SE67835

PATIENT
  Age: 74 Year
  Sex: Female
  Weight: 93.9 kg

DRUGS (7)
  1. PULMICORT FLEXHALER [Suspect]
     Indication: CHRONIC OBSTRUCTIVE PULMONARY DISEASE
     Route: 055
  2. PULMICORT FLEXHALER [Suspect]
     Indication: CHRONIC OBSTRUCTIVE PULMONARY DISEASE
     Route: 055
     Dates: start: 201201
  3. SINGULAIR [Concomitant]
  4. SPIRIVA [Concomitant]
  5. AVANDIA [Concomitant]
     Indication: BLOOD GLUCOSE ABNORMAL
  6. CLONIDINE [Concomitant]
     Indication: BLOOD PRESSURE ABNORMAL
  7. DIOVAN [Concomitant]
     Indication: BLOOD PRESSURE ABNORMAL

REACTIONS (10)
  - Chronic obstructive pulmonary disease [Unknown]
  - Skin exfoliation [Unknown]
  - Burning sensation [Unknown]
  - Wheezing [Unknown]
  - Feeling hot [Unknown]
  - Urticaria [Unknown]
  - Pruritus [Unknown]
  - Cough [Unknown]
  - Drug ineffective [Unknown]
  - Intentional drug misuse [Unknown]
